FAERS Safety Report 11144801 (Version 1)
Quarter: 2015Q2

REPORT INFORMATION
  Report Type: Spontaneous
  Country: GB (occurrence: GB)
  Receive Date: 20150528
  Receipt Date: 20150528
  Transmission Date: 20150821
  Serious: Yes (Hospitalization)
  Sender: FDA-Public Use
  Company Number: GB-TEVA-564676ACC

PATIENT
  Age: 69 Year
  Sex: Male
  Weight: 73 kg

DRUGS (5)
  1. EPIRUBICIN [Suspect]
     Active Substance: EPIRUBICIN
     Indication: GASTRIC CANCER
     Dosage: DOSE REDUCED: 50%
     Route: 042
  2. AVASTIN [Suspect]
     Active Substance: BEVACIZUMAB
     Indication: GASTRIC CANCER
     Dosage: LAST DOSE PRIOR TO SAE: 02/NOV/2011.ACTUAL DOSE GIVEN AT MOST RECENT ADMINISTRATION 520 MG
     Route: 042
     Dates: start: 20111011
  3. XELODA [Suspect]
     Active Substance: CAPECITABINE
     Indication: GASTRIC CANCER
     Dosage: LAST DOSE PRIOR TO SAE: 14-DEC-2011. ACTUAL DOSE GIVEN AT MOST RECENT ADMINISTRATION 2150 MG
     Route: 048
     Dates: start: 20111011
  4. EPIRUBICIN [Suspect]
     Active Substance: EPIRUBICIN
     Dosage: LAST DOSE PRIOR TO SAE: 02/NOV/2011.ACTUAL DOSE GIVEN AT MOST RECENT ADMINISTRATION 90 MG
     Route: 042
     Dates: start: 20111011
  5. CISPLATIN. [Suspect]
     Active Substance: CISPLATIN
     Indication: GASTRIC CANCER
     Dosage: LAST DOSE PRIOR TO SAE: 02/NOV/2011.ACTUAL DOSE GIVEN AT MOST RECENT ADMINISTRATION 108 MG
     Route: 042
     Dates: start: 20111011

REACTIONS (7)
  - Tremor [Unknown]
  - Hypotension [Recovered/Resolved]
  - Neutropenia [Recovered/Resolved]
  - Pyrexia [Recovered/Resolved]
  - Nasopharyngitis [Unknown]
  - Pyrexia [Recovered/Resolved]
  - Liver function test abnormal [Recovered/Resolved]

NARRATIVE: CASE EVENT DATE: 20111113
